FAERS Safety Report 4950985-X (Version None)
Quarter: 2006Q1

REPORT INFORMATION
  Report Type: 
  Country: None (occurrence: None)
  Receive Date: 20060315
  Receipt Date: 20060224
  Transmission Date: 20060701
  Serious: Yes (Death, Hospitalization)
  Sender: FDA-Public Use
  Company Number: AU200602004441

PATIENT
  Age: 49 Year
  Sex: Female

DRUGS (2)
  1. OLANZAPINE [Suspect]
     Indication: PERSONALITY DISORDER
     Dosage: 20 MG
     Dates: start: 20060201
  2. DOTHIEPIN HYDROCHLORIDE [Concomitant]

REACTIONS (3)
  - COMPLETED SUICIDE [None]
  - SKIN LACERATION [None]
  - SUICIDE ATTEMPT [None]
